FAERS Safety Report 4317719-3 (Version None)
Quarter: 2004Q1

REPORT INFORMATION
  Report Type: 
  Country: None (occurrence: None)
  Receive Date: 20040312
  Receipt Date: 20040303
  Transmission Date: 20041129
  Serious: Yes (Hospitalization)
  Sender: FDA-Public Use
  Company Number: 040310-0000309

PATIENT
  Age: 72 Year
  Sex: Female

DRUGS (4)
  1. WINSTROL [Suspect]
     Indication: CRYOFIBRINOGENAEMIA
     Dosage: 2.5 MG; QD
     Dates: start: 20000101
  2. WINSTROL [Suspect]
     Dosage: 10 MG; QD
     Dates: end: 20010101
  3. PREDNISOLONE [Concomitant]
  4. AZATHIOPRINE [Concomitant]

REACTIONS (11)
  - AMYLOIDOSIS [None]
  - CREATININE RENAL CLEARANCE DECREASED [None]
  - DIARRHOEA [None]
  - HAEMATURIA [None]
  - MYOCARDIAL INFARCTION [None]
  - PROTEINURIA [None]
  - PULMONARY OEDEMA [None]
  - PURPURA [None]
  - PYREXIA [None]
  - VASCULITIC RASH [None]
  - VOMITING [None]
